FAERS Safety Report 8477422-5 (Version None)
Quarter: 2012Q2

REPORT INFORMATION
  Report Type: 
  Country: None (occurrence: None)
  Receive Date: 20120629
  Receipt Date: 20120616
  Transmission Date: 20120825
  Serious: Yes (Other)
  Sender: FDA-Public Use
  Company Number: US-VERTEX PHARMACEUTICALS INC.-AE-2012-009016

PATIENT
  Sex: Female
  Weight: 65.83 kg

DRUGS (6)
  1. SYTHROID [Concomitant]
  2. CELEXA [Concomitant]
     Indication: DEPRESSION
  3. INCIVEK [Suspect]
     Indication: HEPATITIS C
     Route: 048
     Dates: start: 20120526
  4. RIBAVIRIN [Concomitant]
     Indication: HEPATITIS C
     Route: 048
     Dates: start: 20120526
  5. PEPCID [Concomitant]
  6. PEGASYS [Concomitant]
     Indication: HEPATITIS C
     Route: 058
     Dates: start: 20120526

REACTIONS (8)
  - LOSS OF CONSCIOUSNESS [None]
  - DEHYDRATION [None]
  - VOMITING [None]
  - HYPOTENSION [None]
  - NAUSEA [None]
  - RED BLOOD CELL COUNT DECREASED [None]
  - HAEMATOCRIT DECREASED [None]
  - RASH [None]
